FAERS Safety Report 12108992 (Version 1)
Quarter: 2016Q1

REPORT INFORMATION
  Report Type: Spontaneous
  Country: US (occurrence: None)
  Receive Date: 20160222
  Receipt Date: 20160222
  Transmission Date: 20160526
  Serious: No
  Sender: FDA-Public Use
  Company Number: None

PATIENT
  Age: 45 Year
  Sex: Male

DRUGS (3)
  1. SUPER B COMP [Concomitant]
  2. SUTENT [Suspect]
     Active Substance: SUNITINIB MALATE
     Route: 048
     Dates: start: 20160112
  3. LEVETIRACETA [Concomitant]

REACTIONS (2)
  - Hypersensitivity [None]
  - Stomatitis [None]

NARRATIVE: CASE EVENT DATE: 201602
